FAERS Safety Report 25076268 (Version 1)
Quarter: 2025Q1

REPORT INFORMATION
  Report Type: Spontaneous
  Country: DE (occurrence: DE)
  Receive Date: 20250313
  Receipt Date: 20250313
  Transmission Date: 20250409
  Serious: Yes (Hospitalization, Congenital Anomaly)
  Sender: MYLAN
  Company Number: DE-EMB-M202303855-1

PATIENT
  Sex: Female
  Weight: 1.61 kg

DRUGS (5)
  1. CITALOPRAM [Suspect]
     Active Substance: CITALOPRAM
     Indication: Depression
     Dosage: 20 MILLIGRAM, QD
     Dates: start: 202301, end: 202309
  2. XYLOMETAZOLINE HYDROCHLORIDE [Suspect]
     Active Substance: XYLOMETAZOLINE HYDROCHLORIDE
     Indication: Substance abuser
     Dosage: UNK UNK, TID (THREE TIMES DAILY 1-2 SPRAYS PER SIDE)
     Dates: start: 202301, end: 202309
  3. ACETAMINOPHEN [Concomitant]
     Active Substance: ACETAMINOPHEN
     Indication: Influenza like illness
     Dosage: 500 MILLIGRAM, Q8H (3 X 500 MG (1 TABLET) AROUND GW 27)
  4. LEVOTHYROXINE SODIUM [Concomitant]
     Active Substance: LEVOTHYROXINE SODIUM
     Indication: Hypothyroidism
     Dosage: 50 MICROGRAM, QD
     Dates: start: 202301, end: 202309
  5. FOLIC ACID [Concomitant]
     Active Substance: FOLIC ACID
     Indication: Prophylaxis of neural tube defect

REACTIONS (3)
  - Pyloric stenosis [Recovered/Resolved]
  - Atrial septal defect [Not Recovered/Not Resolved]
  - Foetal exposure during pregnancy [Unknown]
